FAERS Safety Report 11701168 (Version 1)
Quarter: 2015Q4

REPORT INFORMATION
  Report Type: Spontaneous
  Country: US (occurrence: US)
  Receive Date: 20151105
  Receipt Date: 20151105
  Transmission Date: 20160304
  Serious: No
  Sender: FDA-Public Use
  Company Number: US-GLAXOSMITHKLINE-US2015156980

PATIENT
  Sex: Female

DRUGS (3)
  1. CALCIUM WITH D [Concomitant]
     Active Substance: CALCIUM\VITAMIN D
  2. GLUCOSAMINE [Concomitant]
     Active Substance: GLUCOSAMINE
  3. ADVAIR DISKUS [Suspect]
     Active Substance: FLUTICASONE PROPIONATE\SALMETEROL XINAFOATE
     Indication: COUGH
     Dosage: 100/50MCG 1 PUFF, BID
     Route: 055
     Dates: start: 20150930, end: 20151029

REACTIONS (5)
  - Fatigue [Recovering/Resolving]
  - Drug dose omission [Unknown]
  - Dysphonia [Recovering/Resolving]
  - Device use error [Recovered/Resolved]
  - Drug ineffective [Recovering/Resolving]

NARRATIVE: CASE EVENT DATE: 2015
